FAERS Safety Report 6499777-3 (Version None)
Quarter: 2009Q4

REPORT INFORMATION
  Report Type: 
  Country: None (occurrence: None)
  Receive Date: 20091214
  Receipt Date: 20091202
  Transmission Date: 20100525
  Serious: Yes (Other)
  Sender: FDA-Public Use
  Company Number: 2009US004282

PATIENT
  Age: 63 Year
  Sex: Male

DRUGS (7)
  1. VESICARE [Suspect]
     Indication: HYPERTONIC BLADDER
     Dosage: 10 MG, BID, ORAL
     Route: 048
     Dates: start: 20090101, end: 20090101
  2. DETROL LA [Suspect]
     Indication: HYPERTONIC BLADDER
     Dosage: 4 MG, UID/QD
     Dates: start: 20080101, end: 20090801
  3. DETROL LA [Suspect]
     Indication: HYPERTONIC BLADDER
     Dosage: 4 MG, UID/QD
     Dates: start: 20090101
  4. METFORMIN HCL [Concomitant]
  5. FLOMAX [Concomitant]
  6. DIOVAN [Concomitant]
  7. LANTUS [Concomitant]

REACTIONS (4)
  - DRUG EFFECT INCREASED [None]
  - HYPERTONIC BLADDER [None]
  - URINARY INCONTINENCE [None]
  - WEIGHT INCREASED [None]
